FAERS Safety Report 17171425 (Version 1)
Quarter: 2019Q4

REPORT INFORMATION
  Report Type: Spontaneous
  Country: FR (occurrence: FR)
  Receive Date: 20191218
  Receipt Date: 20191218
  Transmission Date: 20200122
  Serious: Yes (Hospitalization)
  Sender: FDA-Public Use
  Company Number: FR-ASTRAZENECA-2019SF78749

PATIENT
  Age: 78 Year
  Sex: Male

DRUGS (14)
  1. XANAX [Suspect]
     Active Substance: ALPRAZOLAM
     Indication: BIPOLAR I DISORDER
     Route: 048
     Dates: start: 2010, end: 20191117
  2. FINASTERIDE. [Concomitant]
     Active Substance: FINASTERIDE
  3. DEPAMIDE [Suspect]
     Active Substance: VALPROMIDE
     Indication: BIPOLAR I DISORDER
     Route: 048
     Dates: start: 2010
  4. MIRTAZAPINE. [Concomitant]
     Active Substance: MIRTAZAPINE
  5. XEROQUEL LP [Suspect]
     Active Substance: QUETIAPINE FUMARATE
     Indication: BIPOLAR I DISORDER
     Route: 048
     Dates: start: 2010
  6. MODOPAR [Concomitant]
     Active Substance: BENSERAZIDE HYDROCHLORIDE\LEVODOPA
  7. XARELTO 15 MG, COMPRIM??? PELLICUL??? [Concomitant]
  8. FUROSEMIDE. [Concomitant]
     Active Substance: FUROSEMIDE
  9. NOCTAMIDE [Suspect]
     Active Substance: LORMETAZEPAM
     Indication: BIPOLAR I DISORDER
     Route: 048
     Dates: start: 2010, end: 20191117
  10. DOLIPRANE [Concomitant]
     Active Substance: ACETAMINOPHEN
  11. SPASFON [Concomitant]
  12. UROREC [Concomitant]
     Active Substance: SILODOSIN
  13. MOVICOL [Concomitant]
     Active Substance: POLYETHYLENE GLYCOL 3350\POTASSIUM CHLORIDE\SODIUM BICARBONATE\SODIUM CHLORIDE
  14. LANSOPRAZOLE. [Concomitant]
     Active Substance: LANSOPRAZOLE

REACTIONS (3)
  - Anaemia [Not Recovered/Not Resolved]
  - Thrombocytopenia [Recovering/Resolving]
  - Neutropenia [Recovering/Resolving]

NARRATIVE: CASE EVENT DATE: 201911
